FAERS Safety Report 4767460-8 (Version None)
Quarter: 2005Q3

REPORT INFORMATION
  Report Type: 
  Country: None (occurrence: None)
  Receive Date: 20050913
  Receipt Date: 20050824
  Transmission Date: 20060218
  Serious: Yes (Other)
  Sender: FDA-Public Use
  Company Number: PHNR2005AU01308

PATIENT
  Age: 41 Year
  Sex: Male

DRUGS (4)
  1. TEGRETOL [Suspect]
     Indication: BIPOLAR DISORDER
     Dosage: 200 MG DAILY
     Dates: start: 20050706, end: 20050711
  2. ABILIFY [Concomitant]
  3. SOLIAN [Concomitant]
  4. AVANZA [Concomitant]

REACTIONS (1)
  - TRIGEMINAL NEURALGIA [None]
